FAERS Safety Report 11501286 (Version 2)
Quarter: 2015Q4

REPORT INFORMATION
  Report Type: Spontaneous
  Country: IT (occurrence: IT)
  Receive Date: 20150914
  Receipt Date: 20151007
  Transmission Date: 20160304
  Serious: Yes (Hospitalization, Other)
  Sender: FDA-Public Use
  Company Number: IT-ABBVIE-15K-083-1438801-00

PATIENT
  Age: 45 Year
  Sex: Male

DRUGS (1)
  1. HUMIRA [Suspect]
     Active Substance: ADALIMUMAB
     Indication: CROHN^S DISEASE
     Dosage: CYCLIC
     Route: 058
     Dates: start: 20110601, end: 20150609

REACTIONS (10)
  - Intestinal obstruction [Unknown]
  - Malignant peritoneal neoplasm [Unknown]
  - Enterocutaneous fistula [Unknown]
  - Neoplasm [Unknown]
  - Gastrointestinal stenosis [Unknown]
  - Postoperative wound complication [Unknown]
  - Ascites [Unknown]
  - Small intestine adenocarcinoma [Not Recovered/Not Resolved]
  - Scar [Unknown]
  - Impaired healing [Unknown]

NARRATIVE: CASE EVENT DATE: 20150609
